FAERS Safety Report 15743588 (Version 2)
Quarter: 2019Q1

REPORT INFORMATION
  Report Type: Spontaneous
  Country: US (occurrence: US)
  Receive Date: 20181220
  Receipt Date: 20190121
  Transmission Date: 20190417
  Serious: No
  Sender: FDA-Public Use
  Company Number: US-PFIZER INC-2018524067

PATIENT
  Age: 58 Year
  Sex: Male

DRUGS (4)
  1. AMIODARONE HCL [Interacting]
     Active Substance: AMIODARONE HYDROCHLORIDE
     Indication: ARRHYTHMIA
     Dosage: 400 MG, 2X/DAY (TAKE 2 TABLETS TWICE DAILY)
     Route: 048
     Dates: start: 201801, end: 201801
  2. SEROQUEL [Interacting]
     Active Substance: QUETIAPINE FUMARATE
     Indication: SLEEP DISORDER
  3. MORPHINE SULFATE. [Suspect]
     Active Substance: MORPHINE SULFATE
     Indication: CHEST PAIN
     Dosage: UNK
     Route: 042
     Dates: start: 201801, end: 201801
  4. SEROQUEL [Interacting]
     Active Substance: QUETIAPINE FUMARATE
     Indication: BIPOLAR DISORDER
     Dosage: 300 MG, 1X/DAY (TAKE 3 TABLETS, BY MOUTH AT NIGHT )
     Route: 048

REACTIONS (4)
  - Drug interaction [Unknown]
  - Heart rate increased [Unknown]
  - Swelling [Unknown]
  - Swelling face [Unknown]
